FAERS Safety Report 17297074 (Version 1)
Quarter: 2020Q1

REPORT INFORMATION
  Report Type: Spontaneous
  Country: HU (occurrence: HU)
  Receive Date: 20200121
  Receipt Date: 20200121
  Transmission Date: 20200409
  Serious: Yes (Death, Hospitalization, Other)
  Sender: FDA-Public Use
  Company Number: HU-ABBVIE-20K-076-3240639-00

PATIENT
  Age: 69 Year
  Sex: Male

DRUGS (2)
  1. DALSAN [Concomitant]
     Indication: DEPRESSION
     Dosage: FREQUENCY TEXT -1 TABLET IN THE MORNING
     Route: 048
     Dates: start: 201502
  2. DUODOPA [Suspect]
     Active Substance: CARBIDOPA\LEVODOPA
     Indication: PARKINSON^S DISEASE
     Dosage: MD: 2.3 ML; CD: 1.5 ML; ED: 0.5 ML
     Route: 050
     Dates: start: 20150205

REACTIONS (11)
  - General physical health deterioration [Unknown]
  - Malnutrition [Unknown]
  - Dehydration [Unknown]
  - Upper respiratory tract infection [Unknown]
  - Acute kidney injury [Unknown]
  - Encephalopathy [Unknown]
  - Depressed level of consciousness [Unknown]
  - Urine output decreased [Unknown]
  - Renal impairment [Unknown]
  - Sepsis [Fatal]
  - Unresponsive to stimuli [Unknown]

NARRATIVE: CASE EVENT DATE: 201912
